FAERS Safety Report 16387836 (Version 1)
Quarter: 2019Q2

REPORT INFORMATION
  Report Type: Spontaneous
  Country: ES (occurrence: ES)
  Receive Date: 20190604
  Receipt Date: 20190604
  Transmission Date: 20190711
  Serious: Yes (Other)
  Sender: FDA-Public Use
  Company Number: ES-ASTRAZENECA-2019SE76968

PATIENT
  Age: 15 Month
  Sex: Male
  Weight: 7.8 kg

DRUGS (3)
  1. CUTIVATE [Concomitant]
     Active Substance: FLUTICASONE PROPIONATE
     Route: 061
     Dates: start: 20190225, end: 20190303
  2. OMEPRAZOL (2141A) [Suspect]
     Active Substance: OMEPRAZOLE
     Indication: GASTROOESOPHAGEAL REFLUX DISEASE
     Route: 048
     Dates: start: 20190318, end: 20190415
  3. MOTILIUM [Concomitant]
     Active Substance: DOMPERIDONE
     Indication: VOMITING
     Route: 048
     Dates: start: 20190318, end: 20190321

REACTIONS (1)
  - Hypertrichosis [Recovering/Resolving]

NARRATIVE: CASE EVENT DATE: 20190401
